FAERS Safety Report 6378344-6 (Version None)
Quarter: 2009Q3

REPORT INFORMATION
  Report Type: 
  Country: None (occurrence: None)
  Receive Date: 20090925
  Receipt Date: 20090717
  Transmission Date: 20100115
  Serious: Yes (Other)
  Sender: FDA-Public Use
  Company Number: US-ASTRAZENECA-2006UW25503

PATIENT
  Age: 11990 Day
  Sex: Male
  Weight: 70.7 kg

DRUGS (4)
  1. SEROQUEL [Suspect]
     Dosage: 0.75-100 MG
     Route: 048
     Dates: start: 20020402
  2. SEROQUEL [Suspect]
     Route: 048
     Dates: end: 20030501
  3. PAXIL [Concomitant]
     Dosage: 10-40 MG
     Route: 048
     Dates: start: 20000616
  4. BUSPIRONE HCL [Concomitant]
     Dosage: 10-15 MG
     Route: 048
     Dates: start: 20020924

REACTIONS (4)
  - DIABETES MELLITUS [None]
  - HYPERGLYCAEMIA [None]
  - KETOACIDOSIS [None]
  - PANCREATITIS [None]
